FAERS Safety Report 5313002-8 (Version None)
Quarter: 2007Q2

REPORT INFORMATION
  Report Type: 
  Country: None (occurrence: None)
  Receive Date: 20070424
  Receipt Date: 20070419
  Transmission Date: 20071010
  Serious: Yes (Other)
  Sender: FDA-Public Use
  Company Number: E2090-00222-SPO-US

PATIENT
  Age: 30 Year
  Sex: Female

DRUGS (2)
  1. ZONEGRAN [Suspect]
     Indication: EPILEPSY
     Dosage: 300 MG, UNKNOWN, ORAL
     Route: 048
     Dates: start: 20060401
  2. AZITHROMYCIN [Suspect]
     Indication: UPPER RESPIRATORY TRACT INFECTION
     Dosage: UNKNOWN, UNKNOWN, ORAL
     Route: 048
     Dates: start: 20070414, end: 20070416

REACTIONS (2)
  - CONVULSION [None]
  - DRUG INTERACTION [None]
